FAERS Safety Report 15041053 (Version 2)
Quarter: 2018Q2

REPORT INFORMATION
  Report Type: Spontaneous
  Country: AU (occurrence: AU)
  Receive Date: 20180621
  Receipt Date: 20180626
  Transmission Date: 20180711
  Serious: Yes (Other)
  Sender: FDA-Public Use
  Company Number: AU-ALEXION PHARMACEUTICALS INC-A201807553

PATIENT
  Sex: Female

DRUGS (2)
  1. SOLIRIS [Suspect]
     Active Substance: ECULIZUMAB
     Indication: ATYPICAL HAEMOLYTIC URAEMIC SYNDROME
     Dosage: UNK
     Route: 065
  2. SOLIRIS [Suspect]
     Active Substance: ECULIZUMAB
     Dosage: UNK, FORTNIGHTLY
     Route: 065

REACTIONS (5)
  - Haptoglobin decreased [Unknown]
  - Blood creatinine increased [Unknown]
  - Blood lactate dehydrogenase increased [Unknown]
  - Condition aggravated [Unknown]
  - Haemoglobin decreased [Unknown]
